FAERS Safety Report 24385641 (Version 1)
Quarter: 2024Q3

REPORT INFORMATION
  Report Type: Spontaneous
  Country: US (occurrence: None)
  Receive Date: 20240930
  Receipt Date: 20240930
  Transmission Date: 20241017
  Serious: Yes (Hospitalization)
  Sender: Public
  Company Number: None

PATIENT
  Age: 41 Year
  Sex: Female

DRUGS (1)
  1. BOTOX [Suspect]
     Active Substance: ONABOTULINUMTOXINA
     Dates: start: 20240905

REACTIONS (3)
  - Eyelid ptosis [None]
  - Facial paresis [None]
  - Dysphagia [None]

NARRATIVE: CASE EVENT DATE: 20240905
